FAERS Safety Report 15868828 (Version 2)
Quarter: 2020Q2

REPORT INFORMATION
  Report Type: Spontaneous
  Country: FR (occurrence: FR)
  Receive Date: 20190125
  Receipt Date: 20200529
  Transmission Date: 20200713
  Serious: Yes (Hospitalization)
  Sender: FDA-Public Use
  Company Number: FR-NOVOPROD-643564

PATIENT
  Age: 82 Year
  Sex: Female
  Weight: 78 kg

DRUGS (13)
  1. SPECIAFOLDINE [Suspect]
     Active Substance: FOLIC ACID
     Indication: HYPOVITAMINOSIS
     Dosage: 5 MG, QD
     Route: 048
     Dates: start: 20180906, end: 20181118
  2. LERCANIDIPINE HYDROCHLORIDE [Suspect]
     Active Substance: LERCANIDIPINE HYDROCHLORIDE
     Indication: HYPERTENSION
     Dosage: 20 MG, QD (0-0-1)
     Route: 048
     Dates: start: 20180906
  3. CYMBALTA [Suspect]
     Active Substance: DULOXETINE HYDROCHLORIDE
     Indication: DEPRESSION
     Dosage: 30 MG, QD (0-0-1)
     Route: 048
     Dates: start: 20180906
  4. DOLIPRANE [Suspect]
     Active Substance: ACETAMINOPHEN
     Indication: PAIN
     Dosage: 3 MG, QD (1-1-1)
     Route: 048
     Dates: start: 20180906
  5. DUOPLAVIN [Suspect]
     Active Substance: ASPIRIN\CLOPIDOGREL
     Indication: THROMBOSIS PROPHYLAXIS
     Dosage: 1 DF, QD (1-0-0)
     Route: 048
     Dates: start: 20180906, end: 20181118
  6. ATORVASTATINE                      /01326101/ [Suspect]
     Active Substance: ATORVASTATIN
     Indication: CARDIOVASCULAR EVENT PROPHYLAXIS
     Dosage: 10 MG, QD (0-0-1)
     Route: 048
     Dates: start: 20180906, end: 20181119
  7. COLECALCIFEROL [Suspect]
     Active Substance: CHOLECALCIFEROL
     Indication: HYPOVITAMINOSIS
     Dosage: 80000 IU,15 PER DAY
     Route: 048
     Dates: start: 20180906, end: 20181121
  8. VICTOZA [Suspect]
     Active Substance: LIRAGLUTIDE
     Indication: KETOSIS-PRONE DIABETES MELLITUS
     Dosage: 1.2 MG, QD
     Route: 048
     Dates: start: 20180906
  9. LANTUS [Suspect]
     Active Substance: INSULIN GLARGINE
     Indication: KETOSIS-PRONE DIABETES MELLITUS
     Dosage: 22 IU, QD (0-0-22 UNIT?S)
     Route: 058
     Dates: start: 20180906
  10. RAMIPRIL. [Suspect]
     Active Substance: RAMIPRIL
     Indication: HYPERTENSION
     Dosage: 10 MG, QD (1-0-0)
     Route: 048
     Dates: start: 20180906
  11. ZYMAD [Suspect]
     Active Substance: CHOLECALCIFEROL
     Indication: HYPOVITAMINOSIS
     Dosage: 800000 UI , DOSE FREQENCY : QD
     Route: 048
     Dates: start: 20180906, end: 20181121
  12. DULOXETINE HYDROCHLORIDE. [Suspect]
     Active Substance: DULOXETINE HYDROCHLORIDE
     Indication: DEPRESSION
     Dosage: 30 MG, QD
     Route: 048
     Dates: start: 20180906
  13. FUROSEMIDE. [Suspect]
     Active Substance: FUROSEMIDE
     Indication: HYPERTENSION
     Dosage: 20 MG, QD (1-0-0)
     Route: 048
     Dates: start: 20180906

REACTIONS (5)
  - Rhabdomyolysis [Not Recovered/Not Resolved]
  - Incorrect route of product administration [Unknown]
  - Asthenia [Not Recovered/Not Resolved]
  - Fall [Unknown]
  - Drug dose titration not performed [Unknown]

NARRATIVE: CASE EVENT DATE: 20180906
